FAERS Safety Report 15719898 (Version 1)
Quarter: 2018Q4

REPORT INFORMATION
  Report Type: Spontaneous
  Country: US (occurrence: US)
  Receive Date: 20181213
  Receipt Date: 20181213
  Transmission Date: 20190205
  Serious: Yes (Hospitalization, Disabling)
  Sender: FDA-Public Use
  Company Number: US-ENDO PHARMACEUTICALS INC-2017-005414

PATIENT
  Age: 50 Year
  Sex: Male
  Weight: 104.31 kg

DRUGS (3)
  1. TESTIM [Suspect]
     Active Substance: TESTOSTERONE
     Indication: ANDROGEN REPLACEMENT THERAPY
     Dosage: UNK UNKNOWN, DAILY
     Route: 065
     Dates: start: 201107, end: 2014
  2. ANDROGEL [Suspect]
     Active Substance: TESTOSTERONE
     Indication: ANDROGEN REPLACEMENT THERAPY
     Dosage: UNK UNKNOWN, DAILY
     Route: 065
     Dates: start: 201102, end: 201105
  3. ANDROGEL [Suspect]
     Active Substance: TESTOSTERONE
     Dosage: UNK UNKNOWN, DAILY
     Route: 065
     Dates: start: 201108, end: 201110

REACTIONS (4)
  - Acute myocardial infarction [Not Recovered/Not Resolved]
  - Anhedonia [Not Recovered/Not Resolved]
  - Pain [Not Recovered/Not Resolved]
  - Anxiety [Not Recovered/Not Resolved]

NARRATIVE: CASE EVENT DATE: 20111203
